FAERS Safety Report 15095835 (Version 1)
Quarter: 2018Q2

REPORT INFORMATION
  Report Type: Spontaneous
  Country: US (occurrence: US)
  Receive Date: 20180608
  Receipt Date: 20180608
  Transmission Date: 20180711
  Serious: Yes (Hospitalization)
  Sender: FDA-Public Use
  Company Number: None

PATIENT
  Age: 33 Year
  Sex: Male
  Weight: 132.9 kg

DRUGS (3)
  1. ETOPOSIDE (VP-16) [Suspect]
     Active Substance: ETOPOSIDE
     Dates: end: 20180606
  2. CYTARABINE. [Suspect]
     Active Substance: CYTARABINE
     Dates: end: 20180606
  3. METHOTREXATE. [Suspect]
     Active Substance: METHOTREXATE
     Dates: end: 20180604

REACTIONS (7)
  - Polydipsia [None]
  - Intentional product use issue [None]
  - Hyperglycaemia [None]
  - Fatigue [None]
  - Hypoaesthesia [None]
  - Blood glucose decreased [None]
  - Polyuria [None]

NARRATIVE: CASE EVENT DATE: 20180606
